FAERS Safety Report 7385085-5 (Version None)
Quarter: 2011Q1

REPORT INFORMATION
  Report Type: 
  Country: None (occurrence: None)
  Receive Date: 20110330
  Receipt Date: 20110321
  Transmission Date: 20110831
  Serious: Yes (Other)
  Sender: FDA-Public Use
  Company Number: US-ROCHE-767020

PATIENT
  Age: 72 Year
  Sex: Female

DRUGS (4)
  1. RIBAVIRIN [Concomitant]
     Dosage: FREQUENCY: DAILY, DISCONTINUED
     Route: 048
  2. PEGASYS [Suspect]
     Route: 058
  3. PEGASYS [Suspect]
     Dosage: DISCONTINUED.
     Route: 058
  4. RIBAVIRIN [Concomitant]
     Route: 048

REACTIONS (2)
  - VITILIGO [None]
  - INFLUENZA LIKE ILLNESS [None]
